FAERS Safety Report 14756525 (Version 3)
Quarter: 2018Q2

REPORT INFORMATION
  Report Type: Spontaneous
  Country: US (occurrence: US)
  Receive Date: 20180413
  Receipt Date: 20180525
  Transmission Date: 20180711
  Serious: No
  Sender: FDA-Public Use
  Company Number: US-PFIZER INC-2018151108

PATIENT
  Age: 73 Year
  Sex: Female

DRUGS (1)
  1. IBRANCE [Suspect]
     Active Substance: PALBOCICLIB
     Dosage: UNK
     Dates: start: 20180323

REACTIONS (10)
  - Nasal congestion [Unknown]
  - Dysphagia [Unknown]
  - Hypoacusis [Unknown]
  - Weight decreased [Unknown]
  - Nasopharyngitis [Unknown]
  - Fatigue [Unknown]
  - Epistaxis [Unknown]
  - Decreased appetite [Unknown]
  - Cough [Unknown]
  - Nasal dryness [Unknown]

NARRATIVE: CASE EVENT DATE: 2018
